FAERS Safety Report 21854467 (Version 1)
Quarter: 2023Q1

REPORT INFORMATION
  Report Type: Spontaneous
  Country: IT (occurrence: IT)
  Receive Date: 20230112
  Receipt Date: 20230112
  Transmission Date: 20230418
  Serious: Yes (Hospitalization)
  Sender: FDA-Public Use
  Company Number: None

PATIENT
  Age: 82 Year
  Sex: Female

DRUGS (5)
  1. ZOLOFT [Suspect]
     Active Substance: SERTRALINE HYDROCHLORIDE
     Indication: Depression
     Dosage: 25 MILLIGRAM, QD (24 HOURS)
     Route: 048
     Dates: start: 20211001, end: 20221118
  2. OXAZEPAM [Concomitant]
     Active Substance: OXAZEPAM
     Dosage: UNK
     Route: 065
  3. CANRENOATE POTASSIUM [Concomitant]
     Active Substance: CANRENOATE POTASSIUM
     Dosage: UNK
     Route: 065
  4. OXATOMIDE [Concomitant]
     Active Substance: OXATOMIDE
     Dosage: UNK
     Route: 065
  5. LEVOTHYROXINE SODIUM [Concomitant]
     Active Substance: LEVOTHYROXINE SODIUM
     Dosage: UNK
     Route: 065

REACTIONS (5)
  - Portal hypertensive gastropathy [Recovering/Resolving]
  - Anaemia [Recovering/Resolving]
  - Thrombocytopenia [Recovering/Resolving]
  - Melaena [Recovering/Resolving]
  - Gastric haemorrhage [Recovering/Resolving]

NARRATIVE: CASE EVENT DATE: 20221118
